FAERS Safety Report 24803651 (Version 1)
Quarter: 2025Q1

REPORT INFORMATION
  Report Type: Report from Study
  Country: US (occurrence: US)
  Receive Date: 20250103
  Receipt Date: 20250103
  Transmission Date: 20250408
  Serious: Yes (Death, Other)
  Sender: ACADIA PHARMACEUTICALS
  Company Number: US-ACADIA PHARMACEUTICALS INC.-ACA-2025-PIM-000009

PATIENT
  Age: 83 Year
  Sex: Male

DRUGS (14)
  1. NUPLAZID [Suspect]
     Active Substance: PIMAVANSERIN TARTRATE
     Indication: Parkinson^s disease
     Dosage: 34 MILLIGRAM, QD
     Route: 048
     Dates: start: 20221108, end: 20241230
  2. FLUTICASONE [Concomitant]
     Active Substance: FLUTICASONE
  3. CLONAZEPAM [Concomitant]
     Active Substance: CLONAZEPAM
  4. MIDODRINE [Concomitant]
     Active Substance: MIDODRINE
  5. DROXIDOPA [Concomitant]
     Active Substance: DROXIDOPA
  6. MYRBETRIQ [Concomitant]
     Active Substance: MIRABEGRON
  7. DONEPEZIL [Concomitant]
     Active Substance: DONEPEZIL
  8. BUSPIRONE [Concomitant]
     Active Substance: BUSPIRONE HYDROCHLORIDE
  9. ATORVASTATIN [Concomitant]
     Active Substance: ATORVASTATIN
  10. MEMANTINE [Concomitant]
     Active Substance: MEMANTINE
  11. FOLIC ACID [Concomitant]
     Active Substance: FOLIC ACID
  12. SERTRALINE [Concomitant]
     Active Substance: SERTRALINE HYDROCHLORIDE
  13. FINASTERIDE [Concomitant]
     Active Substance: FINASTERIDE
  14. CARBIDOPA\LEVODOPA [Concomitant]
     Active Substance: CARBIDOPA\LEVODOPA

REACTIONS (1)
  - Death [Recovered/Resolved]

NARRATIVE: CASE EVENT DATE: 20241230
